FAERS Safety Report 10086310 (Version 1)
Quarter: 2014Q2

REPORT INFORMATION
  Report Type: Spontaneous
  Country: US (occurrence: None)
  Receive Date: 20140417
  Receipt Date: 20140417
  Transmission Date: 20141212
  Serious: Yes (Other)
  Sender: FDA-Public Use
  Company Number: None

PATIENT
  Age: 38 Year
  Sex: Female
  Weight: 58.97 kg

DRUGS (1)
  1. PROZAC [Suspect]
     Indication: PANIC DISORDER
     Route: 048
     Dates: start: 20110902, end: 20140330

REACTIONS (10)
  - Memory impairment [None]
  - Libido decreased [None]
  - Headache [None]
  - Muscular weakness [None]
  - Fatigue [None]
  - Arthralgia [None]
  - Mood swings [None]
  - Weight decreased [None]
  - Dizziness [None]
  - Poisoning [None]
